FAERS Safety Report 19115952 (Version 1)
Quarter: 2021Q2

REPORT INFORMATION
  Report Type: Spontaneous
  Country: US (occurrence: US)
  Receive Date: 20210409
  Receipt Date: 20210409
  Transmission Date: 20210717
  Serious: No
  Sender: FDA-Public Use
  Company Number: US-MYLANLABS-2021M1019883

PATIENT
  Sex: Male
  Weight: 81 kg

DRUGS (1)
  1. TRIAMTERENE AND HYDROCHLOROTHIAZIDE CAPSULES, USP [Suspect]
     Active Substance: HYDROCHLOROTHIAZIDE\TRIAMTERENE
     Indication: MENIERE^S DISEASE
     Dosage: 1 DOSAGE FORM, AM
     Route: 048

REACTIONS (3)
  - Blood cholesterol abnormal [Not Recovered/Not Resolved]
  - Disturbance in attention [Not Recovered/Not Resolved]
  - Off label use [Not Recovered/Not Resolved]
